FAERS Safety Report 5532639-4 (Version None)
Quarter: 2007Q4

REPORT INFORMATION
  Report Type: 
  Country: None (occurrence: None)
  Receive Date: 20071203
  Receipt Date: 20071105
  Transmission Date: 20080405
  Serious: No
  Sender: FDA-Public Use
  Company Number: US-BOEHRINGER INGELHEIM PHARMACEUTICALS, INC.-2007-BP-23957BP

PATIENT
  Sex: Female

DRUGS (2)
  1. ZANTAC 150 [Suspect]
     Indication: DYSPEPSIA
     Route: 048
     Dates: start: 20071020, end: 20071103
  2. ZANTAC 150 [Suspect]
     Route: 048
     Dates: start: 20071104

REACTIONS (2)
  - GLOSSITIS [None]
  - GLOSSODYNIA [None]
